FAERS Safety Report 8715477 (Version 2)
Quarter: 2015Q2

REPORT INFORMATION
  Report Type: Report from Study
  Country: US (occurrence: US)
  Receive Date: 20120809
  Receipt Date: 20150408
  Transmission Date: 20150821
  Serious: Yes (Death)
  Sender: FDA-Public Use
  Company Number: US-ROCHE-1096903

PATIENT
  Age: 48 Year
  Sex: Male

DRUGS (10)
  1. BRETYLIUM [Concomitant]
  2. VALIUM [Concomitant]
     Active Substance: DIAZEPAM
     Route: 065
  3. LIDOCAINE. [Concomitant]
     Active Substance: LIDOCAINE
     Route: 065
  4. PRONESTYL [Concomitant]
     Active Substance: PROCAINAMIDE HYDROCHLORIDE
     Route: 042
  5. MORPHINE [Concomitant]
     Active Substance: MORPHINE
     Route: 042
  6. HEPARIN [Concomitant]
     Active Substance: HEPARIN SODIUM
     Dosage: 5000 U
     Route: 042
  7. DOBUTAMINE [Concomitant]
     Active Substance: DOBUTAMINE\DOBUTAMINE HYDROCHLORIDE
     Route: 041
  8. ACTIVASE [Suspect]
     Active Substance: ALTEPLASE
     Indication: ACUTE MYOCARDIAL INFARCTION
     Route: 042
  9. ATROPINE [Concomitant]
     Active Substance: ATROPINE
     Route: 065
  10. DOPAMINE [Concomitant]
     Active Substance: DOPAMINE\DOPAMINE HYDROCHLORIDE
     Route: 042

REACTIONS (2)
  - Hypotension [Unknown]
  - Cardiac failure [Fatal]

NARRATIVE: CASE EVENT DATE: 19880618
